FAERS Safety Report 17929803 (Version 2)
Quarter: 2020Q2

REPORT INFORMATION
  Report Type: Spontaneous
  Country: US (occurrence: US)
  Receive Date: 20200623
  Receipt Date: 20200625
  Transmission Date: 20200714
  Serious: No
  Sender: FDA-Public Use
  Company Number: US-PFIZER INC-2020241445

PATIENT
  Age: 73 Year
  Sex: Female
  Weight: 63.05 kg

DRUGS (1)
  1. IBRANCE [Suspect]
     Active Substance: PALBOCICLIB
     Indication: BREAST CANCER METASTATIC
     Dosage: 100 MG
     Dates: start: 201907

REACTIONS (5)
  - Malaise [Unknown]
  - Fatigue [Unknown]
  - Depression [Unknown]
  - Asthenia [Unknown]
  - Diarrhoea [Unknown]
